FAERS Safety Report 8956375 (Version 1)
Quarter: 2012Q4

REPORT INFORMATION
  Report Type: 
  Country: US (occurrence: US)
  Receive Date: 20121210
  Receipt Date: 20121210
  Transmission Date: 20130627
  Serious: Yes (Hospitalization)
  Sender: FDA-Public Use
  Company Number: US-BAYER-2012-127922

PATIENT
  Age: 40 Year
  Sex: Female

DRUGS (10)
  1. OCELLA [Suspect]
  2. YASMIN [Suspect]
  3. FLEXERIL [Concomitant]
     Dosage: As needed
  4. LIDODERM [Concomitant]
     Route: 061
  5. CELEBREX [Concomitant]
     Dosage: 200 mg, UNK
     Route: 048
  6. ATENOLOL [Concomitant]
     Dosage: 100 mg, QD
  7. WELLBUTRIN [Concomitant]
     Dosage: 150 mg, DAILY
  8. PROTONIX [Concomitant]
     Dosage: 40 mg, DAILY
  9. ULTRAM [Concomitant]
     Dosage: UNK UNK, PRN
  10. ASPIRIN [Concomitant]

REACTIONS (1)
  - Peripheral artery thrombosis [None]
